FAERS Safety Report 21838706 (Version 1)
Quarter: 2023Q1

REPORT INFORMATION
  Report Type: Spontaneous
  Country: US (occurrence: None)
  Receive Date: 20230107
  Receipt Date: 20230107
  Transmission Date: 20230418
  Serious: Yes (Hospitalization)
  Sender: FDA-Public Use
  Company Number: None

PATIENT
  Age: 84 Year
  Sex: Male
  Weight: 68.49 kg

DRUGS (2)
  1. LISINOPRIL [Suspect]
     Active Substance: LISINOPRIL
     Indication: Hypertension
     Dosage: FREQUENCY : TWICE A DAY;?
     Route: 048
     Dates: start: 20131216, end: 20220926
  2. CARBOPLATIN [Suspect]
     Active Substance: CARBOPLATIN
     Indication: Cholangiocarcinoma
     Dosage: FREQUENCY : ONCE;?
     Route: 042
     Dates: start: 20220919, end: 20221001

REACTIONS (7)
  - Blood creatinine increased [None]
  - Blood urea increased [None]
  - Glomerular filtration rate decreased [None]
  - Oedema [None]
  - Acute kidney injury [None]
  - Renal tubular necrosis [None]
  - Renal vessel disorder [None]

NARRATIVE: CASE EVENT DATE: 20220926
